FAERS Safety Report 8501523-6 (Version None)
Quarter: 2012Q3

REPORT INFORMATION
  Report Type: 
  Country: None (occurrence: None)
  Receive Date: 20120710
  Receipt Date: 20120705
  Transmission Date: 20120928
  Serious: Yes (Other)
  Sender: FDA-Public Use
  Company Number: US-PFIZER INC-2012162338

PATIENT
  Sex: Female

DRUGS (2)
  1. LYRICA [Suspect]
     Indication: PERIPHERAL NERVE INJURY
  2. LYRICA [Suspect]
     Indication: MOVEMENT DISORDER
     Dosage: UNK
     Dates: start: 20120101

REACTIONS (3)
  - OESOPHAGEAL HAEMORRHAGE [None]
  - GASTROINTESTINAL OEDEMA [None]
  - HAEMORRHAGE [None]
